FAERS Safety Report 6971558-3 (Version None)
Quarter: 2010Q3

REPORT INFORMATION
  Report Type: 
  Country: None (occurrence: None)
  Receive Date: 20100908
  Receipt Date: 20100827
  Transmission Date: 20110219
  Serious: Yes (Other)
  Sender: FDA-Public Use
  Company Number: US-PFIZER INC-2010108616

PATIENT
  Sex: Female
  Weight: 83.9 kg

DRUGS (3)
  1. GLUCOTROL [Suspect]
     Indication: DIABETES MELLITUS
     Dosage: 5 MG, DAILY
     Route: 048
     Dates: start: 20100601
  2. SYNTHROID [Suspect]
     Indication: THYROID HORMONE REPLACEMENT THERAPY
     Dosage: 125 UG, 1X/DAY
     Dates: start: 20050101
  3. METFORMIN [Concomitant]
     Indication: DIABETES MELLITUS
     Dosage: UNK

REACTIONS (3)
  - DIABETES MELLITUS INADEQUATE CONTROL [None]
  - HYPERTHYROIDISM [None]
  - HYPOTHYROIDISM [None]
